FAERS Safety Report 6331341-9 (Version None)
Quarter: 2009Q3

REPORT INFORMATION
  Report Type: 
  Country: None (occurrence: None)
  Receive Date: 20090827
  Receipt Date: 20090824
  Transmission Date: 20100115
  Serious: Yes (Death, Hospitalization)
  Sender: FDA-Public Use
  Company Number: TW-TEVA-206880ISR

PATIENT
  Age: 82 Year
  Sex: Female

DRUGS (3)
  1. CYCLOSPORINE [Suspect]
     Indication: RHEUMATOID ARTHRITIS
  2. HYDROXYCHLOROQUINE SULFATE [Suspect]
     Indication: RHEUMATOID ARTHRITIS
  3. CORTICOSTEROIDS [Suspect]
     Indication: RHEUMATOID ARTHRITIS

REACTIONS (1)
  - MENINGITIS CRYPTOCOCCAL [None]
